FAERS Safety Report 4745225-0 (Version None)
Quarter: 2005Q3

REPORT INFORMATION
  Report Type: 
  Country: None (occurrence: None)
  Receive Date: 20050812
  Receipt Date: 20050804
  Transmission Date: 20060218
  Serious: Yes (Death, Hospitalization, Other)
  Sender: FDA-Public Use
  Company Number: 2005111784

PATIENT
  Age: 62 Year
  Sex: Male

DRUGS (9)
  1. ZOLOFT [Suspect]
     Indication: ILL-DEFINED DISORDER
     Dosage: 2 IN 1 D (ORAL)
     Route: 048
  2. LOVENOX [Suspect]
     Indication: ILL-DEFINED DISORDER
     Dosage: (1 IN 1D) SUBCUTANEOUS
     Route: 058
     Dates: start: 20040101
  3. IBUPROFEN [Suspect]
     Indication: ILL-DEFINED DISORDER
     Dosage: 400 MG (200 MG 2 IN 1 D) ORAL
     Route: 048
  4. OMEPRAZOLE [Concomitant]
  5. ATARAX [Concomitant]
  6. LORAZEPAM [Concomitant]
  7. DANTRIUM [Concomitant]
  8. BACLOFEN [Concomitant]
  9. RIVOTRIL (CLONAZEPAM) [Concomitant]

REACTIONS (7)
  - CEREBRAL HAEMATOMA [None]
  - CEREBRAL HAEMORRHAGE [None]
  - DEPRESSED LEVEL OF CONSCIOUSNESS [None]
  - DYSARTHRIA [None]
  - FACIAL PALSY [None]
  - GLASGOW COMA SCALE ABNORMAL [None]
  - NEUROLOGICAL SYMPTOM [None]
